FAERS Safety Report 23568930 (Version 1)
Quarter: 2024Q1

REPORT INFORMATION
  Report Type: Report from Study
  Country: US (occurrence: US)
  Receive Date: 20240227
  Receipt Date: 20240227
  Transmission Date: 20240410
  Serious: No
  Sender: FDA-Public Use
  Company Number: US-ORG100014127-2023000852

PATIENT
  Age: 69 Year
  Sex: Male

DRUGS (15)
  1. METOPIRONE [Suspect]
     Active Substance: METYRAPONE
     Indication: Cushing^s syndrome
     Dates: start: 20230329
  2. LYSODREN [Concomitant]
     Active Substance: MITOTANE
     Indication: Adrenal gland cancer
     Dosage: 500MG; 2 TABLETS TWICE DAILY
     Route: 048
     Dates: start: 20230329
  3. adapalene cream 0.1% [Concomitant]
     Indication: Product used for unknown indication
  4. amlodipine tab 5mg [Concomitant]
     Indication: Product used for unknown indication
  5. ATORVASTATIN [Concomitant]
     Active Substance: ATORVASTATIN
     Indication: Product used for unknown indication
  6. CARVEDILOL [Concomitant]
     Active Substance: CARVEDILOL
     Indication: Product used for unknown indication
  7. DICLOFENAC [Concomitant]
     Active Substance: DICLOFENAC
     Indication: Product used for unknown indication
  8. Furosemide Tab 20 mg [Concomitant]
     Indication: Product used for unknown indication
  9. GABAPENTIN [Concomitant]
     Active Substance: GABAPENTIN
     Indication: Product used for unknown indication
  10. Hydralazine tab 50mg [Concomitant]
     Indication: Product used for unknown indication
  11. JARDIANCE TAB 10 MG [Concomitant]
     Indication: Product used for unknown indication
  12. OLM MED/HCTZ tab 40/12.5 mg [Concomitant]
     Indication: Product used for unknown indication
  13. Omeprazole Cap 20 mg/40 mg [Concomitant]
     Indication: Product used for unknown indication
  14. Potassium chloride Cap 8Meq ER [Concomitant]
     Indication: Product used for unknown indication
  15. Sulfacetamide LOT 10% [Concomitant]
     Indication: Product used for unknown indication

REACTIONS (2)
  - Diarrhoea [Recovering/Resolving]
  - Off label use [Not Recovered/Not Resolved]

NARRATIVE: CASE EVENT DATE: 20230329
